FAERS Safety Report 14473816 (Version 5)
Quarter: 2018Q1

REPORT INFORMATION
  Report Type: Spontaneous
  Country: US (occurrence: US)
  Receive Date: 20180201
  Receipt Date: 20180328
  Transmission Date: 20180509
  Serious: Yes (Hospitalization)
  Sender: FDA-Public Use
  Company Number: US-PFIZER INC-2018040635

PATIENT
  Sex: Female
  Weight: 67 kg

DRUGS (4)
  1. LYRICA [Suspect]
     Active Substance: PREGABALIN
     Dosage: 50 MG, TWICE DAILY
     Route: 048
     Dates: end: 201712
  2. ELIQUIS [Concomitant]
     Active Substance: APIXABAN
     Dosage: UNK
  3. LYRICA [Suspect]
     Active Substance: PREGABALIN
     Indication: PERIPHERAL NERVE INJURY
     Dosage: 50 MG, TWICE DAILY
     Route: 048
  4. LYRICA [Suspect]
     Active Substance: PREGABALIN
     Indication: PERIPHERAL NERVE INJURY
     Dosage: 2.5 ML, TWICE DAILY
     Route: 048
     Dates: start: 201802

REACTIONS (9)
  - Insomnia [Recovering/Resolving]
  - Joint swelling [Unknown]
  - Pain [Unknown]
  - Burning sensation [Recovering/Resolving]
  - Drug ineffective [Unknown]
  - Nasopharyngitis [Unknown]
  - Meniscus injury [Unknown]
  - Malaise [Unknown]
  - Medication residue present [Recovered/Resolved]

NARRATIVE: CASE EVENT DATE: 2016
